FAERS Safety Report 16810775 (Version 1)
Quarter: 2019Q3

REPORT INFORMATION
  Report Type: Spontaneous
  Country: IT (occurrence: IT)
  Receive Date: 20190916
  Receipt Date: 20190916
  Transmission Date: 20191005
  Serious: Yes (Hospitalization)
  Sender: FDA-Public Use
  Company Number: IT-PFIZER INC-2019392550

PATIENT
  Age: 84 Year
  Sex: Female

DRUGS (12)
  1. PRADAXA [Concomitant]
     Active Substance: DABIGATRAN ETEXILATE MESYLATE
     Dosage: 1 DF, UNK
  2. PROCORALAN [Concomitant]
     Active Substance: IVABRADINE
     Dosage: 2 DF, UNK
  3. EUTIROX [Concomitant]
     Active Substance: LEVOTHYROXINE SODIUM
  4. LASIX [Concomitant]
     Active Substance: FUROSEMIDE
  5. RIVOTRIL [Concomitant]
     Active Substance: CLONAZEPAM
     Dosage: 6 GTT, UNK
  6. TORVAST [Concomitant]
     Active Substance: ATORVASTATIN
  7. VYNDAQEL [Suspect]
     Active Substance: TAFAMIDIS MEGLUMINE
     Indication: AMYLOIDOSIS
     Dosage: 1 DF, 1X/DAY
     Route: 048
     Dates: start: 20190715
  8. LUVION [CANRENONE] [Concomitant]
     Active Substance: CANRENONE
     Dosage: 1 DF, UNK
  9. PANTORC [Concomitant]
     Active Substance: PANTOPRAZOLE SODIUM
     Dosage: 2 DF, UNK
  10. CARDICOR [Concomitant]
     Active Substance: BISOPROLOL
  11. CYMBALTA [Concomitant]
     Active Substance: DULOXETINE HYDROCHLORIDE
     Dosage: 50 MG, UNK
  12. EBIXA [Concomitant]
     Active Substance: MEMANTINE HYDROCHLORIDE

REACTIONS (2)
  - Dyspnoea [Unknown]
  - Pleural effusion [Unknown]

NARRATIVE: CASE EVENT DATE: 20190716
